FAERS Safety Report 15213061 (Version 1)
Quarter: 2018Q3

REPORT INFORMATION
  Report Type: Spontaneous
  Country: FR (occurrence: FR)
  Receive Date: 20180730
  Receipt Date: 20180730
  Transmission Date: 20181010
  Serious: Yes (Death)
  Sender: FDA-Public Use
  Company Number: FR-ACCORD-070199

PATIENT
  Age: 66 Year
  Sex: Female
  Weight: 56 kg

DRUGS (3)
  1. FLUOROURACILE ACCORD [Suspect]
     Active Substance: FLUOROURACIL
     Indication: BREAST CANCER
     Route: 042
     Dates: start: 20171025, end: 20171025
  2. CYCLOPHOSPHAMIDE SANDOZ [Suspect]
     Active Substance: CYCLOPHOSPHAMIDE
     Indication: BREAST CANCER
     Route: 042
     Dates: start: 20171025, end: 20171025
  3. EPIRUBICINE MEDAC [Suspect]
     Active Substance: EPIRUBICIN HYDROCHLORIDE
     Indication: BREAST CANCER
     Route: 042
     Dates: start: 20171025, end: 20171025

REACTIONS (3)
  - Neutropenia [Fatal]
  - Thrombocytopenia [Fatal]
  - Septic shock [Fatal]

NARRATIVE: CASE EVENT DATE: 20171103
